FAERS Safety Report 9763564 (Version 4)
Quarter: 2014Q2

REPORT INFORMATION
  Report Type: Report from Study
  Country: FR (occurrence: FR)
  Receive Date: 20131216
  Receipt Date: 20140417
  Transmission Date: 20141212
  Serious: Yes (Hospitalization, Disabling)
  Sender: FDA-Public Use
  Company Number: FR-GILEAD-2013-0086047

PATIENT
  Age: 50 Year
  Sex: Female
  Weight: 52 kg

DRUGS (17)
  1. SOFOSBUVIR [Suspect]
     Indication: HEPATITIS C
     Dosage: 400 MG, QD
     Route: 048
     Dates: start: 20130625, end: 20131019
  2. RIBAVIRIN [Suspect]
     Indication: HEPATITIS C
     Dosage: 1000 MG, QD
     Route: 048
     Dates: start: 20130625, end: 20131019
  3. TRUVADA [Concomitant]
     Indication: HIV INFECTION
     Route: 048
     Dates: start: 20120824, end: 20131019
  4. DARUNAVIR [Concomitant]
     Indication: HIV INFECTION
     Dosage: 400 MG, UNK
     Route: 048
     Dates: start: 20120824, end: 20130831
  5. DARUNAVIR [Concomitant]
     Dosage: 400 MG, UNK
     Route: 048
     Dates: start: 20130901, end: 20131019
  6. RITONAVIR [Concomitant]
     Indication: HIV INFECTION
     Route: 048
     Dates: start: 20120824, end: 20131019
  7. ALPRAZOLAM [Concomitant]
     Indication: DEPRESSION
     Route: 048
     Dates: start: 20020410
  8. HYDROXYZINE [Concomitant]
     Indication: INSOMNIA
     Route: 048
     Dates: start: 20130622, end: 20130810
  9. DEXERYL                            /01579901/ [Concomitant]
     Indication: DRY SKIN
     Dosage: UNK
     Route: 061
     Dates: start: 20130722, end: 20131028
  10. SEROPLEX [Concomitant]
     Indication: DEPRESSION
     Route: 048
     Dates: start: 20130212
  11. UTROGESTAN [Concomitant]
     Indication: MENOPAUSE
     Route: 048
     Dates: start: 20130722
  12. UVEDOSE [Concomitant]
     Indication: VITAMIN D DEFICIENCY
     Route: 048
     Dates: start: 20121009
  13. FORMAG                             /07892001/ [Concomitant]
     Indication: NUTRITIONAL SUPPLEMENTATION
     Route: 048
     Dates: start: 20130521
  14. VISIOBIANE CONFORT [Concomitant]
     Indication: NUTRITIONAL SUPPLEMENTATION
     Route: 048
     Dates: start: 20130521
  15. VISIOBIANE PROTECT [Concomitant]
     Indication: NUTRITIONAL SUPPLEMENTATION
     Route: 048
     Dates: start: 20130521
  16. OXYBIANE [Concomitant]
     Indication: NUTRITIONAL SUPPLEMENTATION
     Route: 048
     Dates: start: 20130521
  17. FISH OIL OMEGA 3 [Concomitant]
     Indication: NUTRITIONAL SUPPLEMENTATION
     Route: 048
     Dates: start: 20130521

REACTIONS (1)
  - Supraventricular tachycardia [Recovered/Resolved]
